FAERS Safety Report 6008771-8 (Version None)
Quarter: 2008Q4

REPORT INFORMATION
  Report Type: 
  Country: None (occurrence: None)
  Receive Date: 20081217
  Receipt Date: 20081211
  Transmission Date: 20090506
  Serious: Yes (Death, Hospitalization)
  Sender: FDA-Public Use
  Company Number: IT-AMGEN-UK250420

PATIENT
  Sex: Male

DRUGS (12)
  1. PANITUMUMAB [Suspect]
     Indication: COLORECTAL CANCER
     Route: 042
     Dates: start: 20070725, end: 20071005
  2. FUROSEMIDE [Concomitant]
     Route: 065
     Dates: start: 20071103
  3. FENTANYL-100 [Concomitant]
     Route: 065
  4. RAMIPRIL [Concomitant]
     Route: 065
  5. AMIODARONE HCL [Concomitant]
     Route: 065
  6. NADROPARIN CALCIUM [Concomitant]
     Route: 065
  7. CARVEDILOL [Concomitant]
     Route: 065
  8. OMEPRAZOLE [Concomitant]
     Route: 065
  9. ROCEPHIN [Concomitant]
     Route: 065
     Dates: start: 20071027, end: 20071101
  10. LEVOFLOXACIN [Concomitant]
     Route: 065
     Dates: start: 20071027, end: 20071101
  11. CIPROFLOXACIN HCL [Concomitant]
     Route: 065
     Dates: start: 20071105, end: 20071110
  12. CANRENOL [Concomitant]
     Route: 065
     Dates: start: 20071028, end: 20071101

REACTIONS (2)
  - BACK PAIN [None]
  - PNEUMONITIS [None]
